FAERS Safety Report 10280335 (Version 1)
Quarter: 2014Q3

REPORT INFORMATION
  Report Type: Spontaneous
  Country: US (occurrence: US)
  Receive Date: 20140707
  Receipt Date: 20140707
  Transmission Date: 20150326
  Serious: Yes (Other)
  Sender: FDA-Public Use
  Company Number: CHPA2014US008939

PATIENT
  Age: 89 Year
  Sex: Female

DRUGS (7)
  1. PREVACID [Suspect]
     Active Substance: LANSOPRAZOLE
     Indication: OFF LABEL USE
     Dosage: 30 UNK, UNK
  2. LACTAID [Concomitant]
     Active Substance: LACTASE
     Indication: LACTOSE INTOLERANCE
     Route: 065
  3. PREVACID [Suspect]
     Active Substance: LANSOPRAZOLE
     Indication: DYSPEPSIA
     Dosage: 15 MG, ONCE A DAY EVERY FEW DAYS
     Route: 048
  4. PREDNISONE. [Concomitant]
     Active Substance: PREDNISONE
     Indication: MYALGIA
     Dosage: UNK
     Dates: start: 1970
  5. TYLENOL [Concomitant]
     Active Substance: ACETAMINOPHEN
     Route: 065
  6. GAS-X [Suspect]
     Active Substance: DIMETHICONE
     Dosage: 1 DF, PRN
     Route: 065
  7. BABY ASPIRIN [Concomitant]
     Active Substance: ASPIRIN
     Dosage: UNK, QD
     Route: 065

REACTIONS (5)
  - Carpal tunnel syndrome [Not Recovered/Not Resolved]
  - Unevaluable event [Unknown]
  - Incorrect drug administration duration [Unknown]
  - Myocardial infarction [Recovered/Resolved]
  - Therapeutic response changed [Unknown]
